FAERS Safety Report 4638167-2 (Version None)
Quarter: 2005Q2

REPORT INFORMATION
  Report Type: 
  Country: None (occurrence: None)
  Receive Date: 20050415
  Receipt Date: 20050404
  Transmission Date: 20051028
  Serious: No
  Sender: FDA-Public Use
  Company Number: 2005UW03729

PATIENT
  Age: 54 Year
  Sex: Female
  Weight: 68.038 kg

DRUGS (6)
  1. CRESTOR [Suspect]
     Indication: HYPERCHOLESTEROLAEMIA
     Dosage: 10 MG PO
     Route: 048
     Dates: start: 20040101, end: 20041110
  2. TRICOR [Suspect]
     Dosage: 160 MG PO
     Route: 048
     Dates: end: 20041110
  3. ACCOLATE [Suspect]
     Indication: ASTHMA
     Dosage: 20 MG PO
     Route: 048
  4. BENICAR [Concomitant]
  5. MAXZIDE [Concomitant]
  6. PRAVACHOL [Concomitant]

REACTIONS (6)
  - ADVERSE DRUG REACTION [None]
  - ANTINUCLEAR ANTIBODY POSITIVE [None]
  - HEPATIC FIBROSIS [None]
  - HEPATOCELLULAR DAMAGE [None]
  - HYPERSENSITIVITY [None]
  - PROCEDURAL COMPLICATION [None]
